FAERS Safety Report 10876166 (Version 1)
Quarter: 2015Q1

REPORT INFORMATION
  Report Type: Spontaneous
  Country: US (occurrence: US)
  Receive Date: 20150227
  Receipt Date: 20150227
  Transmission Date: 20150721
  Serious: No
  Sender: FDA-Public Use
  Company Number: US-AMGEN-USASP2014026624

PATIENT
  Age: 33 Year
  Sex: Female
  Weight: 87.53 kg

DRUGS (7)
  1. ENBREL [Suspect]
     Active Substance: ETANERCEPT
     Indication: PRODUCT USED FOR UNKNOWN INDICATION
     Dosage: 50 MG, QWK
     Route: 058
  2. NEXIUM [Concomitant]
     Active Substance: ESOMEPRAZOLE MAGNESIUM
     Dosage: 20 MG, UNK
  3. LISINOPRIL. [Concomitant]
     Active Substance: LISINOPRIL
     Dosage: 10 MG, UNK
  4. SYNTHROID [Concomitant]
     Active Substance: LEVOTHYROXINE SODIUM
     Dosage: 125 MCG, UNK
  5. LEXAPRO                            /01588501/ [Concomitant]
     Dosage: 10 MG, UNK
  6. ALLEGRA D 12 HOUR [Concomitant]
     Dosage: UNK
  7. MIRENA [Concomitant]
     Active Substance: LEVONORGESTREL
     Dosage: UNK (IUD SYSTEM)

REACTIONS (2)
  - Blood cholesterol increased [Unknown]
  - Weight increased [Unknown]

NARRATIVE: CASE EVENT DATE: 201311
